FAERS Safety Report 6234675-1 (Version None)
Quarter: 2009Q2

REPORT INFORMATION
  Report Type: 
  Country: None (occurrence: None)
  Receive Date: 20090618
  Receipt Date: 20090216
  Transmission Date: 20091009
  Serious: No
  Sender: FDA-Public Use
  Company Number: US-BAYER-200910610BCC

PATIENT
  Age: 21 Year
  Sex: Female
  Weight: 61 kg

DRUGS (1)
  1. ALEVE (CAPLET) [Suspect]
     Indication: DYSMENORRHOEA
     Dosage: UNIT DOSE: 220 MG
     Route: 048
     Dates: start: 20060101

REACTIONS (2)
  - GASTROOESOPHAGEAL REFLUX DISEASE [None]
  - HYPERHIDROSIS [None]
